FAERS Safety Report 5852477-2 (Version None)
Quarter: 2008Q3

REPORT INFORMATION
  Report Type: 
  Country: None (occurrence: None)
  Receive Date: 20080820
  Receipt Date: 20080820
  Transmission Date: 20090109
  Serious: No
  Sender: FDA-Public Use
  Company Number: None

PATIENT
  Age: 50 Year
  Sex: Female
  Weight: 52.1637 kg

DRUGS (2)
  1. PROZAC [Suspect]
     Indication: DEPRESSION
     Dosage: PROZAC 20 TO 60 MG/DAY PO
     Route: 048
     Dates: start: 19900101, end: 20010101
  2. IMITREX [Suspect]
     Indication: MIGRAINE
     Dosage: IMITREX 50MG PRN PO
     Route: 048
     Dates: start: 19920101, end: 20080101

REACTIONS (3)
  - DEAFNESS NEUROSENSORY [None]
  - DIZZINESS [None]
  - VESTIBULAR DISORDER [None]
